FAERS Safety Report 20591506 (Version 1)
Quarter: 2022Q1

REPORT INFORMATION
  Report Type: Spontaneous
  Country: US (occurrence: US)
  Receive Date: 20220314
  Receipt Date: 20220314
  Transmission Date: 20220423
  Serious: No
  Sender: FDA-Public Use
  Company Number: US-PFIZER INC-202100952289

PATIENT
  Age: 60 Year
  Sex: Male

DRUGS (1)
  1. XELJANZ [Suspect]
     Active Substance: TOFACITINIB CITRATE
     Indication: Rheumatoid arthritis
     Dosage: 5 MG, 2X/DAY
     Route: 048
     Dates: start: 2016

REACTIONS (6)
  - Arthritis [Unknown]
  - Musculoskeletal stiffness [Recovering/Resolving]
  - Osteoarthritis [Unknown]
  - Bone disorder [Not Recovered/Not Resolved]
  - Pain [Unknown]
  - Condition aggravated [Unknown]
